FAERS Safety Report 24765548 (Version 1)
Quarter: 2024Q4

REPORT INFORMATION
  Report Type: Spontaneous
  Country: CN (occurrence: CN)
  Receive Date: 20241223
  Receipt Date: 20241223
  Transmission Date: 20250115
  Serious: Yes (Other)
  Sender: BAYER HEALTHCARE PHARMACEUTICALS INC.
  Company Number: CN-BAYER-2024A177714

PATIENT
  Age: 65 Year
  Sex: Male
  Weight: 46 kg

DRUGS (3)
  1. STIVARGA [Suspect]
     Active Substance: REGORAFENIB MONOHYDRATE
     Indication: Adenocarcinoma of colon
     Dosage: 80 MG, QD
     Route: 048
     Dates: start: 20240924
  2. SINTILIMAB [Concomitant]
     Active Substance: SINTILIMAB
     Indication: Targeted cancer therapy
     Dosage: 200 MG, Q3WK
     Route: 041
     Dates: start: 20240924
  3. SINTILIMAB [Concomitant]
     Active Substance: SINTILIMAB
     Indication: Immune enhancement therapy

REACTIONS (5)
  - Renal impairment [Unknown]
  - Hepatic enzyme increased [Unknown]
  - Blood sodium decreased [None]
  - Incorrect dose administered [None]
  - Product prescribing issue [None]

NARRATIVE: CASE EVENT DATE: 20240924
